FAERS Safety Report 11443882 (Version 1)
Quarter: 2015Q3

REPORT INFORMATION
  Report Type: Report from Study
  Country: CO (occurrence: CO)
  Receive Date: 20150901
  Receipt Date: 20150901
  Transmission Date: 20151125
  Serious: Yes (Other)
  Sender: FDA-Public Use
  Company Number: CO-AMGEN-COLSL2015088865

PATIENT
  Age: 67 Year
  Sex: Male

DRUGS (1)
  1. VECTIBIX [Suspect]
     Active Substance: PANITUMUMAB
     Indication: COLORECTAL CANCER METASTATIC
     Dosage: 450 MG, EVERY 15 DAYS
     Route: 042
     Dates: start: 20150812

REACTIONS (1)
  - Obstructive uropathy [Not Recovered/Not Resolved]

NARRATIVE: CASE EVENT DATE: 20150824
